FAERS Safety Report 13914015 (Version 1)
Quarter: 2017Q3

REPORT INFORMATION
  Report Type: Spontaneous
  Country: US (occurrence: US)
  Receive Date: 20170828
  Receipt Date: 20170828
  Transmission Date: 20171127
  Serious: No
  Sender: FDA-Public Use
  Company Number: US-ROCHE-1127350

PATIENT
  Age: 8 Year
  Sex: Female

DRUGS (5)
  1. NUTROPIN [Suspect]
     Active Substance: SOMATROPIN
     Indication: CONGENITAL CYSTIC KIDNEY DISEASE
     Route: 050
     Dates: start: 19970206
  2. FLINTSTONES VITAMINS [Concomitant]
     Route: 065
  3. BICITRA [Concomitant]
     Active Substance: CITRIC ACID, 1-STEARYL ESTER\SODIUM CITRATE
     Route: 065
  4. NIFEDIPINE. [Concomitant]
     Active Substance: NIFEDIPINE
     Route: 065
  5. DHT [Concomitant]
     Route: 065

REACTIONS (9)
  - Lymphadenopathy [Unknown]
  - Telangiectasia [Unknown]
  - Cough [Unknown]
  - Rash erythematous [Unknown]
  - Multi-organ disorder [Unknown]
  - Abdominal distension [Unknown]
  - Superficial vein prominence [Unknown]
  - Contusion [Unknown]
  - Upper respiratory tract infection [Unknown]

NARRATIVE: CASE EVENT DATE: 19981202
